FAERS Safety Report 13488675 (Version 2)
Quarter: 2017Q2

REPORT INFORMATION
  Report Type: Report from Study
  Country: US (occurrence: US)
  Receive Date: 20170427
  Receipt Date: 20170428
  Transmission Date: 20170830
  Serious: Yes (Hospitalization, Other)
  Sender: FDA-Public Use
  Company Number: US-GILEAD-2016-0234273

PATIENT
  Age: 56 Year
  Sex: Female
  Weight: 76 kg

DRUGS (10)
  1. AMBRISENTAN [Suspect]
     Active Substance: AMBRISENTAN
     Indication: HIV INFECTION
  2. PREZISTA [Concomitant]
     Active Substance: DARUNAVIR ETHANOLATE
  3. DIFORMIN [Concomitant]
     Active Substance: METFORMIN HYDROCHLORIDE
  4. LANSOPRAZOLE. [Concomitant]
     Active Substance: LANSOPRAZOLE
  5. DEXILANT [Concomitant]
     Active Substance: DEXLANSOPRAZOLE
  6. DIGOXIN. [Concomitant]
     Active Substance: DIGOXIN
  7. ZOSYN [Concomitant]
     Active Substance: PIPERACILLIN SODIUM\TAZOBACTAM SODIUM
  8. AMBRISENTAN [Suspect]
     Active Substance: AMBRISENTAN
     Indication: PULMONARY ARTERIAL HYPERTENSION
     Dosage: 10 MG, QD
     Route: 048
  9. ALDACTONE [Concomitant]
     Active Substance: SPIRONOLACTONE
  10. STAVUDINE. [Concomitant]
     Active Substance: STAVUDINE

REACTIONS (12)
  - Chest pain [Unknown]
  - Dyspnoea [Recovered/Resolved]
  - Oedema peripheral [Unknown]
  - Pneumonia [Unknown]
  - Hepatic pain [Unknown]
  - Peripheral swelling [Recovered/Resolved]
  - Pruritus [Recovering/Resolving]
  - Coma [Unknown]
  - Respiratory failure [Recovered/Resolved]
  - Memory impairment [Recovering/Resolving]
  - Pulmonary oedema [Recovered/Resolved]
  - Oxygen saturation decreased [Unknown]

NARRATIVE: CASE EVENT DATE: 20160810
